FAERS Safety Report 22050540 (Version 1)
Quarter: 2023Q1

REPORT INFORMATION
  Report Type: Report from Study
  Country: IT (occurrence: IT)
  Receive Date: 20230301
  Receipt Date: 20230301
  Transmission Date: 20230417
  Serious: Yes (Hospitalization)
  Sender: FDA-Public Use
  Company Number: None

PATIENT
  Age: 22 Year
  Sex: Male

DRUGS (3)
  1. VORTIOXETINE [Suspect]
     Active Substance: VORTIOXETINE
     Indication: Drug abuse
     Dosage: 90 MILLIGRAM
     Route: 065
     Dates: start: 20220528, end: 20220528
  2. EN [Suspect]
     Active Substance: DELORAZEPAM
     Indication: Drug abuse
     Dosage: 75 GTT DROPS
     Route: 065
     Dates: start: 20220528, end: 20220528
  3. SEROQUEL [Suspect]
     Active Substance: QUETIAPINE FUMARATE
     Indication: Drug abuse
     Dosage: 300 MILLIGRAM
     Route: 065
     Dates: start: 20220528, end: 20220528

REACTIONS (4)
  - Sopor [Recovering/Resolving]
  - Drug abuse [Recovering/Resolving]
  - Product use in unapproved indication [Unknown]
  - Intentional overdose [Unknown]

NARRATIVE: CASE EVENT DATE: 20220528
